FAERS Safety Report 5801619-3 (Version None)
Quarter: 2008Q3

REPORT INFORMATION
  Report Type: 
  Country: None (occurrence: None)
  Receive Date: 20080707
  Receipt Date: 20080702
  Transmission Date: 20090109
  Serious: Yes (Other)
  Sender: FDA-Public Use
  Company Number: A0718326A

PATIENT
  Sex: Female
  Weight: 95 kg

DRUGS (1)
  1. ALLI [Suspect]
     Indication: WEIGHT LOSS DIET
     Route: 048
     Dates: start: 20080205

REACTIONS (18)
  - ANOREXIA [None]
  - ASTHENIA [None]
  - ASTHMA [None]
  - BRONCHITIS [None]
  - DRUG INEFFECTIVE [None]
  - DYSPNOEA [None]
  - FATIGUE [None]
  - GASTROINTESTINAL DISORDER [None]
  - ILL-DEFINED DISORDER [None]
  - INFLUENZA [None]
  - MALAISE [None]
  - PYREXIA [None]
  - STRESS [None]
  - THIRST [None]
  - UPPER RESPIRATORY TRACT INFECTION [None]
  - URTICARIA [None]
  - WEIGHT FLUCTUATION [None]
  - WEIGHT INCREASED [None]
